FAERS Safety Report 7820289-6 (Version None)
Quarter: 2011Q4

REPORT INFORMATION
  Report Type: 
  Country: None (occurrence: None)
  Receive Date: 20111012
  Receipt Date: 20110927
  Transmission Date: 20120403
  Serious: Yes (Other)
  Sender: FDA-Public Use
  Company Number: 2011SP043948

PATIENT
  Age: 55 Year
  Sex: Male
  Weight: 52 kg

DRUGS (9)
  1. VIRAFERONPEG [Suspect]
     Indication: HEPATITIS C
     Dosage: 80 MCG;QW
     Dates: start: 20110818, end: 20110908
  2. ZOLPIDEM [Concomitant]
  3. TRUVADA [Concomitant]
  4. SECTRAL [Concomitant]
  5. RIBAVIRIN [Concomitant]
  6. INTENT TO TREAT (INTENT TO TREAT (S-P) ) [Suspect]
     Indication: HEPATITIS C
  7. ISENTRESS [Concomitant]
  8. REBETOL [Suspect]
     Indication: HEPATITIS C
     Dosage: 800 MG;QD
     Dates: start: 20110818, end: 20110908
  9. INTERFERON [Concomitant]

REACTIONS (5)
  - DYSPNOEA [None]
  - VENTRICULAR TACHYCARDIA [None]
  - VENTRICULAR EXTRASYSTOLES [None]
  - PALPITATIONS [None]
  - TACHYCARDIA [None]
